FAERS Safety Report 10673806 (Version 1)
Quarter: 2014Q4

REPORT INFORMATION
  Report Type: Spontaneous
  Country: US (occurrence: None)
  Receive Date: 20141223
  Receipt Date: 20141223
  Transmission Date: 20150529
  Serious: Yes (Disabling, Other)
  Sender: FDA-Public Use
  Company Number: None

PATIENT
  Age: 77 Year
  Sex: Female
  Weight: 62.14 kg

DRUGS (11)
  1. ROPINEROLE [Suspect]
     Active Substance: ROPINIROLE
  2. SYNTHROID [Suspect]
     Active Substance: LEVOTHYROXINE SODIUM
  3. MELATONIN [Concomitant]
     Active Substance: MELATONIN
  4. IBUPROFEN BIOTIN [Concomitant]
  5. PROBOTIC MULTIDOPHILUS [Concomitant]
  6. PROLIA [Suspect]
     Active Substance: DENOSUMAB
     Indication: OSTEOPOROSIS
     Dosage: ONCE  INJECTION IN ARM
     Dates: start: 201108
  7. GABAPENTINE [Suspect]
     Active Substance: GABAPENTIN
  8. CENTRUM SILVER ADULTS [Concomitant]
  9. NEXIUM [Suspect]
     Active Substance: ESOMEPRAZOLE MAGNESIUM
  10. TIZANIDINE (TIZANIDINE) [Suspect]
     Active Substance: TIZANIDINE
  11. ALPRAZOLAM. [Suspect]
     Active Substance: ALPRAZOLAM

REACTIONS (12)
  - Impaired healing [None]
  - Oral pain [None]
  - Jaw disorder [None]
  - Weight decreased [None]
  - Lip disorder [None]
  - Gingival disorder [None]
  - Decreased appetite [None]
  - Noninfective gingivitis [None]
  - Toothache [None]
  - Tooth disorder [None]
  - Burning sensation [None]
  - Scratch [None]

NARRATIVE: CASE EVENT DATE: 201108
